FAERS Safety Report 6183061-1 (Version None)
Quarter: 2009Q2

REPORT INFORMATION
  Report Type: 
  Country: None (occurrence: None)
  Receive Date: 20090507
  Receipt Date: 20090428
  Transmission Date: 20091009
  Serious: Yes (Other)
  Sender: FDA-Public Use
  Company Number: US-GILEAD-2009-0021728

PATIENT
  Age: 51 Year
  Sex: Female

DRUGS (12)
  1. TRUVADA [Suspect]
     Indication: HIV INFECTION
     Dates: start: 20060401, end: 20070501
  2. ROSUVASTATIN CALCIUM [Suspect]
  3. KALETRA [Concomitant]
     Indication: HIV INFECTION
     Route: 048
     Dates: start: 20060401
  4. TRIMETHOPRIM + SULFAMETHOXAZOLE [Concomitant]
  5. FLUCONAZOLE [Concomitant]
  6. HYDROCHLOROTHIAZIDE [Concomitant]
  7. OXYCODONE HCL AND ACETAMINOPHEN [Concomitant]
  8. CLOPIDOGREL [Concomitant]
  9. MEGESTEROL [Concomitant]
  10. AMLODIPINE [Concomitant]
  11. VALACYCLOVIR HCL [Concomitant]
  12. AZITHROMYCIN [Concomitant]

REACTIONS (1)
  - LYMPHOPENIA [None]
